FAERS Safety Report 5886288-9 (Version None)
Quarter: 2008Q3

REPORT INFORMATION
  Report Type: 
  Country: None (occurrence: None)
  Receive Date: 20080917
  Receipt Date: 20080908
  Transmission Date: 20090109
  Serious: Yes (Hospitalization)
  Sender: FDA-Public Use
  Company Number: A0729676A

PATIENT
  Age: 73 Year
  Sex: Female
  Weight: 82.3 kg

DRUGS (15)
  1. AVANDIA [Suspect]
     Dosage: 4MG PER DAY
     Route: 048
     Dates: start: 20041018, end: 20050126
  2. VYTORIN [Concomitant]
  3. ADVAIR DISKUS 100/50 [Concomitant]
  4. COZAAR [Concomitant]
  5. PREVACID [Concomitant]
  6. FLONASE [Concomitant]
  7. IMDUR [Concomitant]
  8. HUMULIN 70/30 [Concomitant]
  9. NORVASC [Concomitant]
  10. COUMADIN [Concomitant]
  11. ELAVIL [Concomitant]
  12. SYNTHROID [Concomitant]
  13. LASIX [Concomitant]
  14. CORGARD [Concomitant]
  15. ZESTRIL [Concomitant]

REACTIONS (2)
  - CARDIAC FAILURE CONGESTIVE [None]
  - MYOCARDIAL ISCHAEMIA [None]
